FAERS Safety Report 17293469 (Version 1)
Quarter: 2020Q1

REPORT INFORMATION
  Report Type: Spontaneous
  Country: US (occurrence: US)
  Receive Date: 20200121
  Receipt Date: 20200121
  Transmission Date: 20200409
  Serious: Yes (Life-Threatening, Hospitalization)
  Sender: FDA-Public Use
  Company Number: US-ADAREPHARM-2019-US-000019

PATIENT
  Age: 60 Year
  Sex: Male

DRUGS (1)
  1. KCL [Suspect]
     Active Substance: POTASSIUM CHLORIDE
     Route: 048

REACTIONS (5)
  - Ileus [Recovered/Resolved]
  - Bradycardia [Recovered/Resolved]
  - Intentional overdose [Recovered/Resolved]
  - Cardiac arrest [Recovered/Resolved]
  - Hyperkalaemia [Recovered/Resolved]
